FAERS Safety Report 7119157-7 (Version None)
Quarter: 2010Q4

REPORT INFORMATION
  Report Type: 
  Country: None (occurrence: None)
  Receive Date: 20101123
  Receipt Date: 20101015
  Transmission Date: 20110411
  Serious: No
  Sender: FDA-Public Use
  Company Number: US-MYLANLABS-2010S1019174

PATIENT
  Age: 52 Year
  Sex: Female

DRUGS (5)
  1. ROPINIROLE HYDROCHLORIDE [Suspect]
     Indication: RESTLESS LEGS SYNDROME
     Route: 048
     Dates: start: 20080101
  2. ZANTAC [Concomitant]
  3. SYNTHROID [Concomitant]
  4. CARBIDOPA AND LEVODOPA [Concomitant]
  5. ZOLOFT [Concomitant]

REACTIONS (3)
  - CHOKING [None]
  - FOREIGN BODY [None]
  - THROAT IRRITATION [None]
